FAERS Safety Report 4869618-6 (Version None)
Quarter: 2005Q4

REPORT INFORMATION
  Report Type: 
  Country: None (occurrence: None)
  Receive Date: 20051227
  Receipt Date: 20051212
  Transmission Date: 20060501
  Serious: Yes (Hospitalization)
  Sender: FDA-Public Use
  Company Number: S05-ITA-05521-01

PATIENT
  Age: 77 Year
  Sex: Female

DRUGS (15)
  1. CITALOPRAM HYDROBROMIDE [Suspect]
     Dosage: 20 MG QD
     Dates: start: 20051003, end: 20051018
  2. ENALAPRIL MALEATE [Suspect]
     Dosage: 15 MG QD
     Dates: end: 20051016
  3. HYDROCHLOROTHIAZIDE [Suspect]
     Dosage: 25 MG QD PO
     Route: 048
     Dates: start: 20051007, end: 20051016
  4. HYDROCHLOROTHIAZIDE [Suspect]
     Dosage: 12.5 MG QD
     Dates: end: 20051006
  5. BISOHEXAL (BISOPROLOL HEMIFUMARATE) (BISOPROLOL) [Concomitant]
  6. SORTIS (ATOVASTATIN) (ATORVASTATIN) [Concomitant]
  7. MARCUMAR [Concomitant]
  8. AMIODARON (AMIODARONE HYDROHCLORIDE) [Concomitant]
  9. MELPERON (MELPERONE HYDROCHLORIDE) (MELPERONE) [Concomitant]
  10. REMEGRIL (MIRTAZAPINE) [Concomitant]
  11. SEROQUEL (QUETIAPINE FUMARTAE) [Concomitant]
  12. CLONAZEPAM [Concomitant]
  13. LORAZEPAM [Concomitant]
  14. SCHWEDEN TABLETTE (SODIUM CHLORIDE) (SODIUM CHLORIDE) [Concomitant]
  15. TIMOMANN (TIMOLOL MALEATE) [Concomitant]

REACTIONS (8)
  - AGITATION [None]
  - DISORIENTATION [None]
  - EOSINOPENIA [None]
  - HYPERHIDROSIS [None]
  - INAPPROPRIATE ANTIDIURETIC HORMONE SECRETION [None]
  - LETHARGY [None]
  - PARAESTHESIA [None]
  - SOMNOLENCE [None]
